FAERS Safety Report 7548521-7 (Version None)
Quarter: 2011Q2

REPORT INFORMATION
  Report Type: 
  Country: None (occurrence: None)
  Receive Date: 20110615
  Receipt Date: 20110601
  Transmission Date: 20111010
  Serious: Yes (Other)
  Sender: FDA-Public Use
  Company Number: US-ELI_LILLY_AND_COMPANY-US201104000243

PATIENT
  Age: 89 Year
  Sex: Female

DRUGS (4)
  1. FORTEO [Suspect]
     Dosage: 20 UG, QD
  2. FORTEO [Suspect]
     Indication: OSTEOPOROSIS
     Dosage: 20 UG, QD
     Dates: start: 20110308, end: 20110317
  3. FORTEO [Suspect]
     Dosage: 20 UG, QD
  4. FORTEO [Suspect]
     Dosage: 20 UG, QD
     Dates: start: 20110522

REACTIONS (10)
  - MUSCULAR WEAKNESS [None]
  - MALAISE [None]
  - ARTHRALGIA [None]
  - KNEE ARTHROPLASTY [None]
  - MYALGIA [None]
  - FATIGUE [None]
  - NASAL CONGESTION [None]
  - VIRAL INFECTION [None]
  - HEARING IMPAIRED [None]
  - INTENTIONAL DRUG MISUSE [None]
